FAERS Safety Report 9381836 (Version 1)
Quarter: 2013Q3

REPORT INFORMATION
  Report Type: Spontaneous
  Country: CH (occurrence: CH)
  Receive Date: 20130703
  Receipt Date: 20130703
  Transmission Date: 20140515
  Serious: Yes (Other)
  Sender: FDA-Public Use
  Company Number: PHHY2013CH065919

PATIENT
  Age: 72 Year
  Sex: Female
  Weight: 65 kg

DRUGS (6)
  1. LISITRIL [Suspect]
     Route: 048
  2. TEGRETOL [Suspect]
     Indication: NERVOUS SYSTEM DISORDER
     Route: 048
  3. TIATRAL [Suspect]
     Route: 048
  4. TARGIN [Suspect]
     Indication: PAIN
     Dosage: 20 MG, BID
     Route: 048
     Dates: end: 20130515
  5. NEXIUM//ESOMEPRAZOLE MAGNESIUM [Suspect]
     Route: 048
  6. NORVASC [Suspect]
     Route: 048

REACTIONS (1)
  - Mixed liver injury [Unknown]
